FAERS Safety Report 8013011-4 (Version None)
Quarter: 2011Q4

REPORT INFORMATION
  Report Type: 
  Country: None (occurrence: None)
  Receive Date: 20111223
  Receipt Date: 20111223
  Transmission Date: 20120403
  Serious: No
  Sender: FDA-Public Use
  Company Number: None

PATIENT
  Age: 60 Year
  Sex: Male
  Weight: 109.3 kg

DRUGS (1)
  1. PHENYTOIN [Suspect]
     Indication: CONVULSION
     Dosage: 400 MG HS PO
     Route: 048
     Dates: start: 20110728, end: 20111218

REACTIONS (2)
  - GRAND MAL CONVULSION [None]
  - PRODUCT QUALITY ISSUE [None]
